FAERS Safety Report 7387007-X (Version None)
Quarter: 2011Q1

REPORT INFORMATION
  Report Type: 
  Country: None (occurrence: None)
  Receive Date: 20110331
  Receipt Date: 20110322
  Transmission Date: 20110831
  Serious: Yes (Hospitalization, Disabling, Other)
  Sender: FDA-Public Use
  Company Number: FR-PFIZER INC-2006108647

PATIENT
  Age: 52 Year
  Sex: Male
  Weight: 60 kg

DRUGS (14)
  1. LYRICA [Suspect]
     Indication: ARTHRALGIA
  2. NORVIR [Concomitant]
  3. LYRICA [Suspect]
     Indication: PAIN
     Dosage: UNK
     Dates: start: 20060621, end: 20070713
  4. INVIRASE [Concomitant]
  5. ZOPICLONE [Concomitant]
     Indication: PAIN
     Dosage: UNK
     Route: 048
     Dates: start: 20050101
  6. LYRICA [Suspect]
     Indication: TEMPORAL ARTERITIS
  7. LYRICA [Suspect]
     Indication: FACIAL NEURALGIA
  8. LAMICTAL [Concomitant]
  9. VIREAD [Concomitant]
  10. ZOPICLONE [Concomitant]
     Indication: INSOMNIA
  11. LYRICA [Suspect]
     Indication: PAIN IN EXTREMITY
  12. PARACETAMOL [Concomitant]
  13. RETROVIR [Concomitant]
  14. NEURONTIN [Concomitant]

REACTIONS (19)
  - OPTIC NERVE DISORDER [None]
  - OPTIC NEURITIS [None]
  - CHROMATOPSIA [None]
  - DRY EYE [None]
  - EJACULATION DISORDER [None]
  - WEIGHT DECREASED [None]
  - VISION BLURRED [None]
  - BLINDNESS [None]
  - SCOTOMA [None]
  - AMBLYOPIA [None]
  - VISUAL FIELD DEFECT [None]
  - NEUROPATHY PERIPHERAL [None]
  - DYSGRAPHIA [None]
  - DRY MOUTH [None]
  - CONSTIPATION [None]
  - FACIAL PAIN [None]
  - VISUAL IMPAIRMENT [None]
  - SUICIDAL IDEATION [None]
  - ERECTILE DYSFUNCTION [None]
